FAERS Safety Report 8323262-7 (Version None)
Quarter: 2012Q2

REPORT INFORMATION
  Report Type: 
  Country: None (occurrence: None)
  Receive Date: 20120430
  Receipt Date: 20120425
  Transmission Date: 20120825
  Serious: Yes (Death)
  Sender: FDA-Public Use
  Company Number: CA-ABBOTT-12P-028-0912317-00

PATIENT
  Age: 64 Year
  Sex: Male

DRUGS (4)
  1. BIAXIN [Suspect]
     Indication: BRONCHITIS
  2. NYQUIL [Interacting]
     Indication: COUGH
  3. BENYLIN DM [Interacting]
     Indication: COUGH
  4. PROZAC [Interacting]
     Indication: BIPOLAR DISORDER

REACTIONS (5)
  - CARDIAC FAILURE [None]
  - DRUG INTERACTION [None]
  - SEROTONIN SYNDROME [None]
  - PULMONARY OEDEMA [None]
  - TOXICITY TO VARIOUS AGENTS [None]
